FAERS Safety Report 19643871 (Version 3)
Quarter: 2021Q3

REPORT INFORMATION
  Report Type: Spontaneous
  Country: JP (occurrence: JP)
  Receive Date: 20210730
  Receipt Date: 20210923
  Transmission Date: 20211014
  Serious: Yes (Life-Threatening, Hospitalization, Other)
  Sender: FDA-Public Use
  Company Number: JP-SUNOVION-2021DSP010734

PATIENT
  Age: 29 Year
  Sex: Male
  Weight: 81 kg

DRUGS (5)
  1. ANAFRANIL [Concomitant]
     Active Substance: CLOMIPRAMINE HYDROCHLORIDE
     Indication: DEPRESSIVE SYMPTOM
     Dosage: 50 MG, QD
     Route: 048
  2. LOXOPROFEN SODIUM [Concomitant]
     Active Substance: LOXOPROFEN SODIUM
     Indication: HEADACHE
     Dosage: 60 MG, TID
     Route: 048
  3. ALLELOCK [Concomitant]
     Active Substance: OLOPATADINE HYDROCHLORIDE
     Indication: RHINITIS ALLERGIC
     Dosage: 5 MG, BID
     Route: 048
  4. LATUDA [Suspect]
     Active Substance: LURASIDONE HYDROCHLORIDE
     Indication: BIPOLAR DISORDER
     Dosage: 40 MG, QD
     Route: 048
     Dates: start: 20210531, end: 20210602
  5. ETIZOLAM [Concomitant]
     Active Substance: ETIZOLAM
     Indication: DEPRESSIVE SYMPTOM
     Dosage: 1 MG, TID
     Route: 048

REACTIONS (3)
  - Pulmonary embolism [Not Recovered/Not Resolved]
  - Iron deficiency anaemia [Unknown]
  - Hyperlipidaemia [Unknown]

NARRATIVE: CASE EVENT DATE: 20210602
